FAERS Safety Report 13208263 (Version 5)
Quarter: 2018Q3

REPORT INFORMATION
  Report Type: Spontaneous
  Country: US (occurrence: US)
  Receive Date: 20170208
  Receipt Date: 20180817
  Transmission Date: 20181010
  Serious: Yes (Other)
  Sender: FDA-Public Use
  Company Number: US-AMGEN-USASP2016160737

PATIENT
  Age: 77 Year
  Sex: Female
  Weight: 67.57 kg

DRUGS (20)
  1. NEULASTA [Suspect]
     Active Substance: PEGFILGRASTIM
     Indication: AGRANULOCYTOSIS
     Dosage: 6 MG, UNK
     Route: 058
     Dates: start: 20161110, end: 20161111
  2. AMIODARONE [Concomitant]
     Active Substance: AMIODARONE
     Dosage: 100 MG, QD
  3. 5?FU [Concomitant]
     Active Substance: FLUOROURACIL
     Indication: COLON CANCER
     Dosage: 400 MG/M2, UNK
  4. MAGNESIUM [Concomitant]
     Active Substance: MAGNESIUM
     Dosage: 250 MG, BID
  5. OXALIPLATIN. [Suspect]
     Active Substance: OXALIPLATIN
     Dosage: 85 MG/M2, UNK
     Route: 065
     Dates: start: 20160613, end: 20161228
  6. CLARITIN [Concomitant]
     Active Substance: LORATADINE
     Dosage: 10 MG, QD
     Route: 048
  7. FUROSEMIDE. [Concomitant]
     Active Substance: FUROSEMIDE
     Dosage: 40 MG, QD
  8. NEUPOGEN [Suspect]
     Active Substance: FILGRASTIM
     Indication: AGRANULOCYTOSIS
     Dosage: 300 MUG, UNK
     Route: 058
     Dates: start: 20160926, end: 20161101
  9. FUSILEV [Concomitant]
     Active Substance: LEVOLEUCOVORIN CALCIUM
     Indication: COLON CANCER
     Dosage: 200 MG/M2, UNK
     Dates: start: 20160613, end: 20161228
  10. COMPAZINE [Concomitant]
     Active Substance: PROCHLORPERAZINE MALEATE
     Dosage: 10 MG, UNK (6 HOURS (QID) PRN NAUSEA)
     Route: 048
     Dates: start: 20160523
  11. VITAMIN B12 [Concomitant]
     Active Substance: CYANOCOBALAMIN
     Dosage: 2500 MUG, QD (1 P.O. Q. DAY)
     Route: 060
  12. NEUPOGEN [Suspect]
     Active Substance: FILGRASTIM
     Dosage: 300 MUG, UNK
     Route: 058
     Dates: start: 20161201
  13. COENZYME Q10 [Concomitant]
     Active Substance: UBIDECARENONE
     Dosage: 300 MG, QD
     Route: 048
     Dates: start: 20160512
  14. OXALIPLATIN. [Suspect]
     Active Substance: OXALIPLATIN
     Indication: COLON CANCER
     Dosage: 75 MG/M2, CYCLICAL
     Route: 065
  15. LECITHIN [Concomitant]
     Active Substance: LECITHIN
     Dosage: 518 MG, QD
     Dates: start: 20160512
  16. MVI [Concomitant]
     Active Substance: VITAMINS
     Dosage: UNK UNK, QD (1 P.O. Q, DAY)
     Dates: start: 20160512
  17. VARUBI [Concomitant]
     Active Substance: ROLAPITANT
     Dosage: 90 MG, UNK (2 TABLETS 1?2 HOURS PRIOR CHEMO)
     Route: 048
     Dates: start: 20160516
  18. PROBIOTIC 4 [Concomitant]
     Dosage: UNK UNK, QD
  19. LOPERAMIDE [Concomitant]
     Active Substance: LOPERAMIDE
     Indication: DIARRHOEA
     Dosage: UNK
     Dates: start: 20160523
  20. Z?BEC [Concomitant]
     Active Substance: CYANOCOBALAMIN\DEXPANTHENOL\NIACINAMIDE\PYRIDOXINE HYDROCHLORIDE\RIBOFLAVIN 5^-PHOSPHATE SODIUM\THIAMINE HYDROCHLORIDE\VITAMIN B COMPLEX
     Dosage: UNK UNK, QD

REACTIONS (23)
  - Metastases to liver [Not Recovered/Not Resolved]
  - Metastases to pancreas [Not Recovered/Not Resolved]
  - Speech disorder [Not Recovered/Not Resolved]
  - General physical health deterioration [Not Recovered/Not Resolved]
  - Blood count abnormal [Unknown]
  - Lumbar spinal stenosis [Unknown]
  - Spinal osteoarthritis [Unknown]
  - Increased tendency to bruise [Unknown]
  - Mental impairment [Not Recovered/Not Resolved]
  - Pelvic deformity [Not Recovered/Not Resolved]
  - Muscular weakness [Unknown]
  - Anaemia vitamin B12 deficiency [Unknown]
  - Decreased appetite [Unknown]
  - Oedema peripheral [Unknown]
  - Intervertebral disc protrusion [Not Recovered/Not Resolved]
  - Fatigue [Unknown]
  - Arthralgia [Not Recovered/Not Resolved]
  - Nausea [Unknown]
  - Bone pain [Not Recovered/Not Resolved]
  - Aortic valve disease [Not Recovered/Not Resolved]
  - Wrong technique in product usage process [Unknown]
  - Neuropathy peripheral [Not Recovered/Not Resolved]
  - Lumbar radiculopathy [Unknown]

NARRATIVE: CASE EVENT DATE: 2016
